FAERS Safety Report 16254356 (Version 7)
Quarter: 2020Q1

REPORT INFORMATION
  Report Type: Report from Study
  Country: JP (occurrence: JP)
  Receive Date: 20190430
  Receipt Date: 20200330
  Transmission Date: 20200409
  Serious: Yes (Death, Life-Threatening, Hospitalization)
  Sender: FDA-Public Use
  Company Number: JP-ACTELION-A-CH2019-189687

PATIENT
  Age: 51 Year
  Sex: Male
  Weight: 71.2 kg

DRUGS (13)
  1. LANSOPRAZOLE. [Concomitant]
     Active Substance: LANSOPRAZOLE
  2. AMINOLEBAN EN [Concomitant]
     Active Substance: UNSPECIFIED INGREDIENT
     Indication: HEPATITIS C
     Dosage: 1 DF, QD
     Dates: end: 20190417
  3. HUMALOG [Concomitant]
     Active Substance: INSULIN LISPRO
  4. CAMOSTAT MESILATE [Concomitant]
     Active Substance: CAMOSTAT MESYLATE
     Indication: HEPATITIS C
     Dosage: 300 MG, QD
     Dates: end: 20190417
  5. WARFARIN [Concomitant]
     Active Substance: WARFARIN
     Indication: MESENTERIC VEIN THROMBOSIS
     Dosage: 2.5 MG, QD
     Dates: end: 20190417
  6. INSULIN DEGLUDEC [Concomitant]
     Active Substance: INSULIN DEGLUDEC
  7. LACTULOSE. [Concomitant]
     Active Substance: LACTULOSE
  8. UPTRAVI [Suspect]
     Active Substance: SELEXIPAG
     Indication: PULMONARY ARTERIAL HYPERTENSION
     Dosage: 0.4 MG, QD
     Route: 048
     Dates: start: 20190327, end: 20190417
  9. TRESIBA [Concomitant]
     Active Substance: INSULIN DEGLUDEC
  10. INSULIN LISPRO [Concomitant]
     Active Substance: INSULIN LISPRO
  11. ALLOPURINOL. [Concomitant]
     Active Substance: ALLOPURINOL
     Indication: HYPERURICAEMIA
     Dosage: 100 MG, QD
     Dates: end: 20190417
  12. OPSUMIT [Suspect]
     Active Substance: MACITENTAN
     Indication: PULMONARY ARTERIAL HYPERTENSION
     Dosage: 10 MG, QD
     Route: 048
     Dates: start: 20190319, end: 20190417
  13. SITAGLIPTIN PHOSPHATE MONOHYDRATE [Concomitant]
     Active Substance: SITAGLIPTIN PHOSPHATE
     Indication: TYPE 2 DIABETES MELLITUS
     Dosage: 50 MG, QD
     Dates: end: 20190417

REACTIONS (6)
  - Arrhythmia [Fatal]
  - Condition aggravated [Fatal]
  - Oedema [Not Recovered/Not Resolved]
  - Pulmonary arterial hypertension [Fatal]
  - Ascites [Unknown]
  - Fall [Unknown]

NARRATIVE: CASE EVENT DATE: 20190415
